FAERS Safety Report 17964776 (Version 1)
Quarter: 2020Q2

REPORT INFORMATION
  Report Type: Report from Study
  Country: US (occurrence: US)
  Receive Date: 20200630
  Receipt Date: 20200630
  Transmission Date: 20200714
  Serious: Yes (Other)
  Sender: FDA-Public Use
  Company Number: US-MYLANLABS-2020M1060129

PATIENT

DRUGS (2)
  1. SODIUM POLYSTYRENE SULFONATE. [Interacting]
     Active Substance: SODIUM POLYSTYRENE SULFONATE
     Indication: HYPERKALAEMIA
     Route: 065
  2. TACROLIMUS. [Suspect]
     Active Substance: TACROLIMUS
     Indication: IMMUNOSUPPRESSANT DRUG THERAPY
     Dosage: 4.5 MILLIGRAM, QD, IMMEDIATE-RELEASE TACROLIMUS APPROXIMATELY 4.5 MG/DAY
     Route: 065

REACTIONS (3)
  - Drug interaction [Unknown]
  - Drug level changed [Unknown]
  - Hyperkalaemia [Recovering/Resolving]
